FAERS Safety Report 7632158-5 (Version None)
Quarter: 2011Q3

REPORT INFORMATION
  Report Type: 
  Country: None (occurrence: None)
  Receive Date: 20110725
  Receipt Date: 20110523
  Transmission Date: 20111222
  Serious: No
  Sender: FDA-Public Use
  Company Number: US-BRISTOL-MYERS SQUIBB COMPANY-15769425

PATIENT
  Age: 66 Year
  Sex: Male
  Weight: 109 kg

DRUGS (4)
  1. FUROSEMIDE [Concomitant]
  2. LIPITOR [Concomitant]
  3. COUMADIN [Suspect]
  4. METOPROLOL TARTRATE [Concomitant]

REACTIONS (3)
  - FATIGUE [None]
  - INTERNATIONAL NORMALISED RATIO FLUCTUATION [None]
  - DIZZINESS [None]
